FAERS Safety Report 11235738 (Version 2)
Quarter: 2015Q3

REPORT INFORMATION
  Report Type: Report from Study
  Country: CA (occurrence: CA)
  Receive Date: 20150702
  Receipt Date: 20150806
  Transmission Date: 20151125
  Serious: Yes (Other)
  Sender: FDA-Public Use
  Company Number: CA-CELGENE-CAN-2015065523

PATIENT
  Age: 74 Year
  Sex: Male

DRUGS (2)
  1. REVLIMID [Suspect]
     Active Substance: LENALIDOMIDE
     Indication: PLASMA CELL MYELOMA
     Route: 048
     Dates: start: 20140219, end: 20150608
  2. DEXAMETHASONE. [Suspect]
     Active Substance: DEXAMETHASONE
     Indication: PLASMA CELL MYELOMA
     Route: 048
     Dates: start: 20140219, end: 20150603

REACTIONS (1)
  - Coronary artery disease [Recovered/Resolved]

NARRATIVE: CASE EVENT DATE: 20150608
